FAERS Safety Report 4433095-X (Version None)
Quarter: 2004Q3

REPORT INFORMATION
  Report Type: 
  Country: None (occurrence: None)
  Receive Date: 20040823
  Receipt Date: 20040809
  Transmission Date: 20050211
  Serious: Yes (Hospitalization)
  Sender: FDA-Public Use
  Company Number: US-JNJFOC-20040803381

PATIENT
  Age: 0 Day
  Sex: Female

DRUGS (16)
  1. INFLIXIMAB                 (INFLIXIMAB, RECOMBINANT) [Suspect]
     Indication: CROHN'S DISEASE
     Dosage: 5 MG/KG, INTRAVENOUS
     Route: 064
     Dates: start: 20020718
  2. INFLIXIMAB                 (INFLIXIMAB, RECOMBINANT) [Suspect]
     Indication: CROHN'S DISEASE
     Dosage: 5 MG/KG, INTRAVENOUS
     Route: 064
     Dates: start: 20020912
  3. INFLIXIMAB                 (INFLIXIMAB, RECOMBINANT) [Suspect]
     Indication: CROHN'S DISEASE
     Dosage: 5 MG/KG, INTRAVENOUS
     Route: 064
     Dates: start: 20021003
  4. INFLIXIMAB                 (INFLIXIMAB, RECOMBINANT) [Suspect]
     Indication: CROHN'S DISEASE
     Dosage: 5 MG/KG, INTRAVENOUS
     Route: 064
     Dates: start: 20021107
  5. INFLIXIMAB                 (INFLIXIMAB, RECOMBINANT) [Suspect]
     Indication: CROHN'S DISEASE
     Dosage: 5 MG/KG, INTRAVENOUS
     Route: 064
     Dates: start: 20030126
  6. INFLIXIMAB                 (INFLIXIMAB, RECOMBINANT) [Suspect]
     Indication: CROHN'S DISEASE
     Dosage: 5 MG/KG, INTRAVENOUS
     Route: 064
     Dates: start: 20030320
  7. INFLIXIMAB                 (INFLIXIMAB, RECOMBINANT) [Suspect]
     Indication: CROHN'S DISEASE
     Dosage: 5 MG/KG, INTRAVENOUS
     Route: 064
     Dates: start: 20030512
  8. INFLIXIMAB                 (INFLIXIMAB, RECOMBINANT) [Suspect]
     Indication: CROHN'S DISEASE
     Dosage: 5 MG/KG, INTRAVENOUS
     Route: 064
     Dates: start: 20030630
  9. INFLIXIMAB                 (INFLIXIMAB, RECOMBINANT) [Suspect]
     Indication: CROHN'S DISEASE
     Dosage: 5 MG/KG, INTRAVENOUS
     Route: 064
     Dates: start: 20030818
  10. INFLIXIMAB                 (INFLIXIMAB, RECOMBINANT) [Suspect]
     Indication: CROHN'S DISEASE
     Dosage: 5 MG/KG, INTRAVENOUS
     Route: 064
     Dates: start: 20031023
  11. INFLIXIMAB                 (INFLIXIMAB, RECOMBINANT) [Suspect]
     Indication: CROHN'S DISEASE
     Dosage: 5 MG/KG, INTRAVENOUS
     Route: 064
     Dates: start: 20031201
  12. INFLIXIMAB                 (INFLIXIMAB, RECOMBINANT) [Suspect]
     Indication: CROHN'S DISEASE
     Dosage: 5 MG/KG, INTRAVENOUS
     Route: 064
     Dates: start: 20040119
  13. INFLIXIMAB                 (INFLIXIMAB, RECOMBINANT) [Suspect]
     Indication: CROHN'S DISEASE
     Dosage: 5 MG/KG, INTRAVENOUS
     Route: 064
     Dates: start: 20040422
  14. INFLIXIMAB                 (INFLIXIMAB, RECOMBINANT) [Suspect]
     Indication: CROHN'S DISEASE
     Dosage: 5 MG/KG, INTRAVENOUS
     Route: 064
     Dates: start: 20040614
  15. ANTISPASMOTICS (ANTISPASMOTIC; ANTICHOLINERGICS) [Suspect]
     Indication: CROHN'S DISEASE
  16. ANTIDEPRESSANTS [Suspect]
     Indication: CROHN'S DISEASE

REACTIONS (4)
  - BLOOD BILIRUBIN INCREASED [None]
  - MATERNAL DRUGS AFFECTING FOETUS [None]
  - NEONATAL DISORDER [None]
  - PREMATURE BABY [None]
